FAERS Safety Report 7285542-6 (Version None)
Quarter: 2011Q1

REPORT INFORMATION
  Report Type: 
  Country: None (occurrence: None)
  Receive Date: 20110210
  Receipt Date: 20100519
  Transmission Date: 20110831
  Serious: Yes (Death, Hospitalization, Other)
  Sender: FDA-Public Use
  Company Number: DE-ABBOTT-10P-062-0645691-00

PATIENT
  Sex: Female
  Weight: 65 kg

DRUGS (4)
  1. MTX [Concomitant]
     Indication: RHEUMATOID ARTHRITIS
     Dosage: ONCE PER WEEK
     Route: 058
     Dates: start: 20050511, end: 20100418
  2. HUMIRA [Suspect]
     Indication: RHEUMATOID ARTHRITIS
     Route: 058
     Dates: start: 20051213, end: 20100418
  3. VALORON [Concomitant]
     Indication: RHEUMATOID ARTHRITIS
     Dosage: ONCE PER DAY
     Route: 048
     Dates: start: 20040519, end: 20100418
  4. PREDNISOLONE [Concomitant]
     Indication: RHEUMATOID ARTHRITIS
     Route: 048
     Dates: start: 20020703, end: 20100418

REACTIONS (7)
  - MULTI-ORGAN FAILURE [None]
  - COMA [None]
  - SMALL CELL LUNG CANCER METASTATIC [None]
  - ATRIAL FIBRILLATION [None]
  - PAIN [None]
  - ANURIA [None]
  - RESPIRATORY FAILURE [None]
